FAERS Safety Report 23367636 (Version 1)
Quarter: 2024Q1

REPORT INFORMATION
  Report Type: Report from Study
  Country: CN (occurrence: CN)
  Receive Date: 20240104
  Receipt Date: 20240104
  Transmission Date: 20240409
  Serious: Yes (Other)
  Sender: FDA-Public Use
  Company Number: CN-TAKEDA-2024TUS000148

PATIENT

DRUGS (3)
  1. FRUQUINTINIB [Suspect]
     Active Substance: FRUQUINTINIB
     Indication: Colorectal cancer metastatic
     Dosage: 4 MILLIGRAM
     Route: 048
  2. TRIFLURIDINE [Suspect]
     Active Substance: TRIFLURIDINE
     Indication: Colorectal cancer metastatic
     Dosage: 35 MILLIGRAM/SQ. METER
     Route: 048
  3. TIPIRACIL [Suspect]
     Active Substance: TIPIRACIL
     Indication: Colorectal cancer metastatic
     Dosage: 35 MILLIGRAM/SQ. METER
     Route: 048

REACTIONS (1)
  - Hypothyroidism [Unknown]
